FAERS Safety Report 7725570-7 (Version None)
Quarter: 2011Q3

REPORT INFORMATION
  Report Type: 
  Country: None (occurrence: None)
  Receive Date: 20110902
  Receipt Date: 20110825
  Transmission Date: 20111222
  Serious: Yes (Other)
  Sender: FDA-Public Use
  Company Number: US-US-EMD SERONO, INC.-7079412

PATIENT
  Sex: Male
  Weight: 65 kg

DRUGS (1)
  1. REBIF [Suspect]
     Indication: MULTIPLE SCLEROSIS
     Route: 058
     Dates: start: 20080303

REACTIONS (5)
  - MUSCLE STRAIN [None]
  - VISUAL IMPAIRMENT [None]
  - WEIGHT DECREASED [None]
  - INJECTION SITE ERYTHEMA [None]
  - MULTIPLE MYELOMA [None]
